FAERS Safety Report 4679890-3 (Version None)
Quarter: 2005Q2

REPORT INFORMATION
  Report Type: 
  Country: None (occurrence: None)
  Receive Date: 20050602
  Receipt Date: 20050307
  Transmission Date: 20051028
  Serious: Yes (Other)
  Sender: FDA-Public Use
  Company Number: US-GLAXOSMITHKLINE-A0548635A

PATIENT
  Age: 51 Year
  Sex: Male

DRUGS (2)
  1. AUGMENTIN [Suspect]
     Indication: SINUSITIS
     Dosage: 875MG TWICE PER DAY
     Route: 048
     Dates: start: 20050127
  2. LOTREL [Concomitant]

REACTIONS (2)
  - BLOOD URINE PRESENT [None]
  - HEPATIC ENZYME INCREASED [None]
